FAERS Safety Report 22650805 (Version 1)
Quarter: 2023Q2

REPORT INFORMATION
  Report Type: Spontaneous
  Country: GB (occurrence: GB)
  Receive Date: 20230628
  Receipt Date: 20230628
  Transmission Date: 20230722
  Serious: Yes (Life-Threatening)
  Sender: FDA-Public Use
  Company Number: GB-MHRA-MED-202306161050461660-WRMTH

PATIENT
  Age: 53 Year
  Sex: Female
  Weight: 80 kg

DRUGS (4)
  1. BISOPROLOL [Suspect]
     Active Substance: BISOPROLOL
     Indication: Suicide attempt
     Dosage: 160MG;  16 BISOPROLOL 10MG TABLETS,
     Route: 065
     Dates: end: 20230608
  2. CODEINE [Suspect]
     Active Substance: CODEINE
     Indication: Suicide attempt
     Dosage: 690 MG;  23 CODEINE 30MG TABLES,
     Route: 065
     Dates: end: 20230608
  3. MORPHINE [Suspect]
     Active Substance: MORPHINE
     Indication: Suicide attempt
     Dosage: 350MG; 350MG MORPHINE (AS ORAMORPH 10MG/5ML)
     Route: 065
     Dates: end: 20230608
  4. RAMIPRIL [Suspect]
     Active Substance: RAMIPRIL
     Indication: Suicide attempt
     Dosage: 80MG; 16 RAMIPRIL 5MG CAPSULES,
     Route: 065
     Dates: end: 20230608

REACTIONS (1)
  - Overdose [Recovering/Resolving]
